FAERS Safety Report 10716908 (Version 2)
Quarter: 2015Q2

REPORT INFORMATION
  Report Type: Report from Study
  Country: JP (occurrence: JP)
  Receive Date: 20150116
  Receipt Date: 20150401
  Transmission Date: 20150821
  Serious: Yes (Hospitalization)
  Sender: FDA-Public Use
  Company Number: PHHY2015JP002851

PATIENT
  Age: 31 Year
  Sex: Female

DRUGS (10)
  1. PARIET [Concomitant]
     Active Substance: RABEPRAZOLE SODIUM
     Indication: PROPHYLAXIS
     Dosage: 20 MG, UNK
     Route: 048
     Dates: start: 20130905
  2. NEUROTROPIN [Concomitant]
     Active Substance: NEUROTROPIN
     Indication: MULTIPLE SCLEROSIS
     Dosage: 16 IU, UNK
     Route: 048
     Dates: start: 20120329, end: 20120411
  3. MUCOSTA [Concomitant]
     Active Substance: REBAMIPIDE
     Indication: PROPHYLAXIS
     Dosage: 300 MG, UNK
     Route: 048
     Dates: start: 20120802, end: 20130904
  4. CARBAMAZEPINE. [Concomitant]
     Active Substance: CARBAMAZEPINE
     Indication: PRODUCT USED FOR UNKNOWN INDICATION
     Dosage: 100 MG, UNK
     Route: 048
     Dates: start: 20120712, end: 20120725
  5. LOXONIN [Concomitant]
     Active Substance: LOXOPROFEN SODIUM
     Indication: MULTIPLE SCLEROSIS
     Dosage: 120 MG, UNK
     Route: 048
     Dates: start: 20120301, end: 20120801
  6. LOXONIN [Concomitant]
     Active Substance: LOXOPROFEN SODIUM
     Dosage: 60 UNK, UNK
     Route: 048
     Dates: start: 20120830, end: 20121213
  7. LYRICA [Concomitant]
     Active Substance: PREGABALIN
     Indication: MULTIPLE SCLEROSIS
     Dosage: 75 MG, UNK
     Route: 048
     Dates: start: 20120301, end: 20120314
  8. GILENYA [Suspect]
     Active Substance: FINGOLIMOD HYDROCHLORIDE
     Indication: MULTIPLE SCLEROSIS
     Dosage: 0.5 MG, QD
     Route: 048
     Dates: start: 20120216
  9. CYMBALTA [Concomitant]
     Active Substance: DULOXETINE HYDROCHLORIDE
     Indication: MULTIPLE SCLEROSIS
     Dosage: 20 MG, UNK
     Route: 048
     Dates: start: 20120531, end: 20120614
  10. TOFRANIL [Concomitant]
     Active Substance: IMIPRAMINE HYDROCHLORIDE
     Indication: MULTIPLE SCLEROSIS
     Dosage: 30 MG, UNK
     Route: 048
     Dates: start: 20120315, end: 20120328

REACTIONS (2)
  - Gait disturbance [Recovering/Resolving]
  - Multiple sclerosis relapse [Recovered/Resolved]

NARRATIVE: CASE EVENT DATE: 20120508
